FAERS Safety Report 8880636 (Version 1)
Quarter: 2012Q4

REPORT INFORMATION
  Report Type: 
  Country: BR (occurrence: BR)
  Receive Date: 20121101
  Receipt Date: 20121101
  Transmission Date: 20130627
  Serious: Yes (Other)
  Sender: FDA-Public Use
  Company Number: BR-009507513-1210BRA005253

PATIENT
  Sex: Female

DRUGS (3)
  1. TIENAM [Suspect]
     Indication: URINARY TRACT INFECTION
     Dosage: 500 mg, qid
     Route: 042
     Dates: start: 2007
  2. CEFEPIME [Concomitant]
     Indication: PNEUMONIA
     Dosage: 2 g, bid
     Route: 042
     Dates: start: 2007
  3. VANCOMYCIN [Concomitant]
     Dosage: 1.5 g, qd
     Dates: start: 2007

REACTIONS (1)
  - Sepsis [Recovered/Resolved]
